FAERS Safety Report 23631500 (Version 2)
Quarter: 2024Q1

REPORT INFORMATION
  Report Type: Spontaneous
  Country: US (occurrence: US)
  Receive Date: 20240314
  Receipt Date: 20240328
  Transmission Date: 20240410
  Serious: Yes (Other)
  Sender: FDA-Public Use
  Company Number: US-BECTON DICKINSON-US-BD-24-000119

PATIENT
  Age: 39 Year
  Sex: Female

DRUGS (6)
  1. CHLORAPREP [Suspect]
     Active Substance: CHLORHEXIDINE GLUCONATE\ISOPROPYL ALCOHOL
     Indication: Infection prophylaxis
     Dosage: UNK
     Route: 061
     Dates: start: 20240129, end: 20240129
  2. DERMABOND [Suspect]
     Active Substance: OCRYLATE
     Indication: Wound closure
     Dosage: UNK
     Route: 065
     Dates: start: 20240129, end: 20240129
  3. LEXAPRO [Concomitant]
     Active Substance: ESCITALOPRAM OXALATE
     Indication: Anxiety
     Dosage: ONE AND A HALF TABLETS DAILY (15 MG DOSE)
     Route: 048
  4. VITAMIN D NOS [Concomitant]
     Active Substance: VITAMIN D NOS
     Indication: Blood calcium decreased
     Dosage: 1 DOSAGE FORM, WEEKLY
     Route: 048
     Dates: start: 20231222
  5. XELODA [Concomitant]
     Active Substance: CAPECITABINE
     Indication: Chemotherapy
     Dosage: 3 DOSAGE FORM, BID, MONDAY THROUGH FRIDAY
     Route: 048
     Dates: start: 20240129, end: 20240307
  6. COMBIPATCH [Concomitant]
     Active Substance: ESTRADIOL\NORETHINDRONE ACETATE
     Indication: Hormone replacement therapy
     Dosage: 1 DOSAGE FORM, BIW TO LOWER BACK
     Route: 065
     Dates: start: 20240212

REACTIONS (5)
  - Dermatitis contact [Recovered/Resolved]
  - Rash papular [Recovered/Resolved]
  - Rash [Recovered/Resolved]
  - Erythema [Recovered/Resolved]
  - Rash pruritic [Recovered/Resolved]

NARRATIVE: CASE EVENT DATE: 20240129
